FAERS Safety Report 8051648-7 (Version None)
Quarter: 2012Q1

REPORT INFORMATION
  Report Type: 
  Country: None (occurrence: None)
  Receive Date: 20120118
  Receipt Date: 20120109
  Transmission Date: 20120608
  Serious: No
  Sender: FDA-Public Use
  Company Number: US-BIOGENIDEC-2011BI031298

PATIENT
  Sex: Female

DRUGS (3)
  1. LEXAPRO [Concomitant]
     Indication: PRODUCT USED FOR UNKNOWN INDICATION
  2. TYSABRI [Suspect]
     Indication: MULTIPLE SCLEROSIS
     Route: 042
     Dates: start: 20070109
  3. AVONEX [Concomitant]
     Indication: MULTIPLE SCLEROSIS
     Route: 030
     Dates: start: 20070201

REACTIONS (9)
  - HYPOAESTHESIA [None]
  - FEELING ABNORMAL [None]
  - WHITE BLOOD CELL COUNT INCREASED [None]
  - WHITE BLOOD CELL COUNT ABNORMAL [None]
  - HEADACHE [None]
  - HYPERTENSION [None]
  - FATIGUE [None]
  - PARAESTHESIA [None]
  - MALAISE [None]
